FAERS Safety Report 5090962-4 (Version None)
Quarter: 2006Q3

REPORT INFORMATION
  Report Type: 
  Country: None (occurrence: None)
  Receive Date: 20060823
  Receipt Date: 20060808
  Transmission Date: 20061208
  Serious: Yes (Hospitalization, Other)
  Sender: FDA-Public Use
  Company Number: US-2006-022403

PATIENT
  Age: 44 Year
  Sex: Female
  Weight: 59 kg

DRUGS (2)
  1. BETASERON [Suspect]
     Indication: RELAPSING-REMITTING MULTIPLE SCLEROSIS
     Dosage: SUBCUTANEOUS
     Route: 058
     Dates: start: 19950101, end: 19950101
  2. AVONEX [Concomitant]

REACTIONS (4)
  - BRONCHOGENIC CYST [None]
  - CERVICAL VERTEBRAL FRACTURE [None]
  - INFLUENZA LIKE ILLNESS [None]
  - TRAUMATIC FRACTURE [None]
